FAERS Safety Report 23797930 (Version 1)
Quarter: 2024Q2

REPORT INFORMATION
  Report Type: Spontaneous
  Country: US (occurrence: None)
  Receive Date: 20240426
  Receipt Date: 20240426
  Transmission Date: 20240716
  Serious: Yes (Disabling)
  Sender: FDA-Public Use
  Company Number: None

PATIENT
  Age: 60 Year
  Sex: Male
  Weight: 122.4 kg

DRUGS (8)
  1. REMICADE [Suspect]
     Active Substance: INFLIXIMAB
     Indication: Crohn^s disease
     Dates: start: 20070501, end: 20100501
  2. DEVICE [Concomitant]
     Active Substance: DEVICE
  3. PROZAC [Concomitant]
     Active Substance: FLUOXETINE HYDROCHLORIDE
  4. KLONOPIN [Concomitant]
     Active Substance: CLONAZEPAM
  5. PENTASA [Concomitant]
     Active Substance: MESALAMINE
  6. COLESTIPOL [Concomitant]
     Active Substance: COLESTIPOL
  7. TESTOSTERONE [Concomitant]
     Active Substance: TESTOSTERONE
  8. NM-6603 [Concomitant]
     Active Substance: NM-6603

REACTIONS (4)
  - Hypoaesthesia [None]
  - Paraesthesia [None]
  - Paraesthesia [None]
  - Nerve injury [None]

NARRATIVE: CASE EVENT DATE: 20150715
